FAERS Safety Report 13866893 (Version 1)
Quarter: 2017Q3

REPORT INFORMATION
  Report Type: Spontaneous
  Country: US (occurrence: US)
  Receive Date: 20170814
  Receipt Date: 20170814
  Transmission Date: 20171127
  Serious: Yes (Other)
  Sender: FDA-Public Use
  Company Number: US-CELGENEUS-USA-2015106738

PATIENT

DRUGS (4)
  1. REVLIMID [Suspect]
     Active Substance: LENALIDOMIDE
     Indication: NON-HODGKIN^S LYMPHOMA
     Dosage: 10 MILLIGRAM
     Route: 048
  2. REVLIMID [Suspect]
     Active Substance: LENALIDOMIDE
     Dosage: 15 MILLIGRAM
     Route: 048
  3. OBINUTUZUMAB. [Suspect]
     Active Substance: OBINUTUZUMAB
     Indication: NON-HODGKIN^S LYMPHOMA
     Dosage: 1000 MILLIGRAM
     Route: 041
  4. REVLIMID [Suspect]
     Active Substance: LENALIDOMIDE
     Dosage: 20 MILLIGRAM
     Route: 048

REACTIONS (11)
  - Neutropenia [Unknown]
  - Dyspnoea [Unknown]
  - Non-Hodgkin^s lymphoma [Unknown]
  - Infection [Unknown]
  - Fatigue [Unknown]
  - Infusion related reaction [Unknown]
  - Thrombocytopenia [Unknown]
  - Myalgia [Unknown]
  - Diarrhoea [Unknown]
  - Constipation [Unknown]
  - Rash [Unknown]
